FAERS Safety Report 7933268-5 (Version None)
Quarter: 2011Q4

REPORT INFORMATION
  Report Type: 
  Country: None (occurrence: None)
  Receive Date: 20111122
  Receipt Date: 20111109
  Transmission Date: 20120403
  Serious: Yes (Hospitalization, Other)
  Sender: FDA-Public Use
  Company Number: AU-ELI_LILLY_AND_COMPANY-AU201111003463

PATIENT
  Age: 32 Year
  Sex: Male

DRUGS (3)
  1. ZYPREXA RELPREVV [Suspect]
     Indication: SCHIZOPHRENIA
     Dosage: 405 MG, MONTHLY (1/M)
     Route: 030
     Dates: start: 20110101, end: 20111108
  2. VALPROATE SODIUM [Concomitant]
  3. BENZTROPINE MESYLATE [Concomitant]

REACTIONS (2)
  - LOSS OF CONSCIOUSNESS [None]
  - AGITATION [None]
